FAERS Safety Report 7594137-6 (Version None)
Quarter: 2011Q3

REPORT INFORMATION
  Report Type: 
  Country: None (occurrence: None)
  Receive Date: 20110706
  Receipt Date: 20110628
  Transmission Date: 20111222
  Serious: Yes (Other)
  Sender: FDA-Public Use
  Company Number: US-ABBOTT-11P-163-0834999-00

PATIENT

DRUGS (3)
  1. DOFETILIDE [Suspect]
     Indication: PRODUCT USED FOR UNKNOWN INDICATION
  2. DOFETILIDE [Suspect]
  3. TRICOR [Suspect]
     Indication: PRODUCT USED FOR UNKNOWN INDICATION

REACTIONS (2)
  - HYPERTENSION [None]
  - HEART RATE IRREGULAR [None]
